FAERS Safety Report 6712196-7 (Version None)
Quarter: 2010Q2

REPORT INFORMATION
  Report Type: 
  Country: None (occurrence: None)
  Receive Date: 20100505
  Receipt Date: 20100426
  Transmission Date: 20101027
  Serious: Yes (Other)
  Sender: FDA-Public Use
  Company Number: JP-PFIZER INC-2010018887

PATIENT
  Sex: Female

DRUGS (6)
  1. CORTRIL [Suspect]
     Indication: BRONCHOPULMONARY DYSPLASIA
     Dosage: 3 MG, 1X/DAY
     Route: 048
     Dates: start: 20060319, end: 20060420
  2. CORTRIL [Suspect]
     Indication: CIRCULATORY COLLAPSE
  3. AMINOPHYLLINE [Concomitant]
     Route: 042
     Dates: start: 20060327, end: 20060330
  4. NEOPHYLLIN [Concomitant]
     Route: 048
     Dates: start: 20060331, end: 20060507
  5. LASIX [Concomitant]
     Route: 048
     Dates: start: 20060420, end: 20060713
  6. SPIRONOLACTONE [Concomitant]
     Route: 048
     Dates: start: 20060420, end: 20060713

REACTIONS (1)
  - HYPOPITUITARISM [None]
